FAERS Safety Report 5270057-7 (Version None)
Quarter: 2007Q1

REPORT INFORMATION
  Report Type: 
  Country: None (occurrence: None)
  Receive Date: 20061214
  Receipt Date: 20060518
  Transmission Date: 20070707
  Serious: Yes (Other)
  Sender: FDA-Public Use
  Company Number: 2006064332

PATIENT
  Age: 90 Year
  Sex: Female

DRUGS (3)
  1. BEXTRA [Suspect]
     Indication: ILL-DEFINED DISORDER
     Dosage: 10 MG
     Dates: start: 20040101, end: 20040429
  2. VIOXX [Suspect]
     Indication: ILL-DEFINED DISORDER
     Dosage: 25 MG
  3. ASPIRIN [Suspect]
     Indication: ANTICOAGULANT THERAPY
     Dates: end: 20060101

REACTIONS (9)
  - DERMATITIS ACNEIFORM [None]
  - ECCHYMOSIS [None]
  - GAIT DISTURBANCE [None]
  - HAEMATOMA [None]
  - PRURITUS [None]
  - RENAL DISORDER [None]
  - SKIN DISORDER [None]
  - THROMBOSIS [None]
  - VISION BLURRED [None]
